FAERS Safety Report 9900219 (Version 3)
Quarter: 2014Q1

REPORT INFORMATION
  Report Type: Report from Study
  Country: CA (occurrence: CA)
  Receive Date: 20140214
  Receipt Date: 20140311
  Transmission Date: 20141002
  Serious: Yes (Death)
  Sender: FDA-Public Use
  Company Number: CA-ROCHE-1349669

PATIENT
  Sex: Female

DRUGS (10)
  1. XELODA [Suspect]
     Indication: GASTRIC CANCER
     Route: 048
     Dates: start: 20130920
  2. XELODA [Suspect]
     Route: 048
     Dates: start: 201311
  3. METFORMIN [Concomitant]
     Route: 065
  4. GLYBURIDE [Concomitant]
  5. ENALAPRIL [Concomitant]
  6. AMLODIPINE [Concomitant]
  7. SIMVASTATIN [Concomitant]
  8. DOCUSATE [Concomitant]
  9. TYLENOL [Concomitant]
  10. DOMPERIDONE [Concomitant]

REACTIONS (2)
  - Death [Fatal]
  - Drug intolerance [Unknown]
